FAERS Safety Report 6728634-X (Version None)
Quarter: 2010Q2

REPORT INFORMATION
  Report Type: 
  Country: None (occurrence: None)
  Receive Date: 20100517
  Receipt Date: 20100504
  Transmission Date: 20101027
  Serious: Yes (Other)
  Sender: FDA-Public Use
  Company Number: US-ELI_LILLY_AND_COMPANY-US201005000877

PATIENT
  Age: 25 Year
  Sex: Female

DRUGS (4)
  1. CYMBALTA [Suspect]
     Dosage: 30 MG, DAILY (1/D)
  2. GEODON [Concomitant]
     Indication: BIPOLAR DISORDER
     Dosage: 40 MG, EACH EVENING
  3. VISTARIL [Concomitant]
     Dosage: 50 MG, EACH EVENING
  4. VISTARIL [Concomitant]
     Dosage: 100 MG, EACH EVENING

REACTIONS (1)
  - ELECTROCARDIOGRAM QT PROLONGED [None]
